FAERS Safety Report 9752012 (Version 1)
Quarter: 2013Q4

REPORT INFORMATION
  Report Type: Spontaneous
  Country: FR (occurrence: None)
  Receive Date: 20131211
  Receipt Date: 20131211
  Transmission Date: 20140711
  Serious: Yes (Hospitalization, Other)
  Sender: FDA-Public Use
  Company Number: 2013000142

PATIENT
  Age: 63 Year
  Sex: Female

DRUGS (11)
  1. ACEON (PERINDOPRIL ERBUMINE) TABLET [Suspect]
     Indication: HYPERTENSION
     Route: 048
     Dates: start: 20130604, end: 20130605
  2. CERTICAN (EVEROLIMUS) [Concomitant]
  3. CELLCEPT (MYCOPHENOLATE MOFETIL) TABLET [Concomitant]
  4. CORTANCYL (PREDNISONE) [Concomitant]
  5. MOPRAL (OMEPRAZOLE) [Concomitant]
  6. TRIFLUCAN (FLUCONAZOLE) [Concomitant]
  7. BACTRIM [Concomitant]
  8. URSOLVAN (URSODEOXYCHOLIC ACID) [Concomitant]
  9. DELURSAN (URSODEXYCHOLIC ACID) [Concomitant]
  10. METFORMIN HYDROCHLORIDE (METFORMIN HYDROCHLORIDE) [Concomitant]
  11. INSULIN (INSULIN HUMAN) [Concomitant]

REACTIONS (8)
  - Angioedema [None]
  - Dyspnoea [None]
  - Abdominal pain upper [None]
  - Vomiting [None]
  - Salivary hypersecretion [None]
  - Insomnia [None]
  - Neoplasm skin [None]
  - Tongue oedema [None]
